FAERS Safety Report 9809071 (Version 3)
Quarter: 2014Q1

REPORT INFORMATION
  Report Type: Spontaneous
  Country: GB (occurrence: GB)
  Receive Date: 20140110
  Receipt Date: 20140219
  Transmission Date: 20141002
  Serious: Yes (Death, Hospitalization, Other)
  Sender: FDA-Public Use
  Company Number: GB-VERTEX PHARMACEUTICALS INC-2014-000094

PATIENT
  Age: 24 Year
  Sex: Female

DRUGS (17)
  1. KALYDECO [Suspect]
     Indication: CYSTIC FIBROSIS
     Dosage: 150 MG, BID
     Route: 048
     Dates: start: 20120320, end: 20140113
  2. MULTI-VITAMINS VITAFIT [Concomitant]
     Dosage: UNK, TID
  3. VITAMIN E [Concomitant]
     Dosage: 400 MG, QD
     Route: 048
  4. VITAMIN K [Concomitant]
     Dosage: 10 MG, QD
  5. ACETYL [Concomitant]
     Dosage: 1600 MG, QD
  6. FOLIC ACID [Concomitant]
     Dosage: 5 MG, QD
  7. URSODEOXYCHOLIC ACID [Concomitant]
     Dosage: 500 MG MORNING, 750MG EVENING
  8. PREDNISOLONE [Concomitant]
  9. CALCICHEW D3 FORTE [Concomitant]
  10. OMEPRAZOLE [Concomitant]
  11. SUMATRIPTAN [Concomitant]
  12. AZITHROMYCIN [Concomitant]
  13. PULMOZYME [Concomitant]
  14. SALBUTAMOL [Concomitant]
  15. TIOTROPIUM [Concomitant]
  16. SERETIDE [Concomitant]
  17. HYPERTONIC SALINE SOLUTION [Concomitant]

REACTIONS (4)
  - Respiratory failure [Fatal]
  - Grand mal convulsion [Unknown]
  - Syncope [Unknown]
  - Cough [Unknown]
